FAERS Safety Report 7533280-4 (Version None)
Quarter: 2011Q2

REPORT INFORMATION
  Report Type: 
  Country: None (occurrence: None)
  Receive Date: 20110608
  Receipt Date: 20090412
  Transmission Date: 20111010
  Serious: Yes (Death, Other)
  Sender: FDA-Public Use
  Company Number: US-BAYER-200917866NA

PATIENT
  Age: 18 Year
  Sex: Male
  Weight: 75 kg

DRUGS (26)
  1. ZOLOFT [Concomitant]
  2. PROTAMINE SULFATE [Concomitant]
     Dosage: 750 MG
     Route: 042
     Dates: start: 20050505, end: 20050505
  3. TRASYLOL [Suspect]
     Indication: STERNOTOMY
     Dosage: 1 ML TEST DOSE
     Route: 042
     Dates: start: 20050505, end: 20050505
  4. TRASYLOL [Suspect]
     Dosage: 50 ML /HOUR INFUSION
     Route: 042
     Dates: start: 20050505, end: 20050505
  5. MANNITOL [Concomitant]
     Dosage: 100 GMS PRIME PUMP
     Route: 050
     Dates: start: 20050505, end: 20050505
  6. EPINEPHRINE [Concomitant]
     Dosage: 4MG
     Route: 042
     Dates: start: 20050505, end: 20050505
  7. INSULIN [Concomitant]
     Dosage: 278 UNITS
     Route: 042
     Dates: start: 20050505, end: 20050505
  8. FACTOR VII [Concomitant]
     Dosage: 8 UNITS
     Route: 042
     Dates: end: 20050505
  9. DECADRON [Concomitant]
     Dosage: 40 MG
     Route: 042
     Dates: start: 20050505, end: 20050505
  10. MIDAZOLAM [Concomitant]
     Dosage: 3MG
     Route: 042
     Dates: start: 20050505, end: 20050505
  11. PLASMA [Concomitant]
     Dosage: 12 UNITS
     Route: 042
     Dates: start: 20050505, end: 20050505
  12. ADDERALL 10 [Concomitant]
  13. TRASYLOL [Suspect]
     Dosage: 200 ML LOADING DOSE
     Route: 042
     Dates: start: 20050505, end: 20050505
  14. DOPAMINE HCL [Concomitant]
     Dosage: 400 MG
     Route: 042
     Dates: start: 20050505, end: 20050505
  15. HEPARIN [Concomitant]
     Dosage: 5000 UNITS PRIME PUMP
     Route: 050
     Dates: start: 20050505, end: 20050505
  16. HEPARIN [Concomitant]
     Dosage: 42000 UNITS
     Route: 042
     Dates: start: 20050505, end: 20050505
  17. DILANTIN [Concomitant]
     Dosage: 125 MG EVERY MORNING AND 150 MG EVERY NIGHT
  18. DOPAMINE HCL [Concomitant]
     Dosage: 29.5 MCG
     Route: 042
     Dates: start: 20050505, end: 20050505
  19. RED BLOOD CELLS [Concomitant]
     Dosage: 23 UNITS
     Route: 042
     Dates: start: 20050505, end: 20050505
  20. CRYOPRECIPITATES [Concomitant]
     Dosage: 20 UNITS
     Route: 042
     Dates: start: 20050505, end: 20050505
  21. ALBUMIN (HUMAN) [Concomitant]
     Dosage: 500 ML
     Route: 042
     Dates: start: 20050505, end: 20050505
  22. CONTRAST MEDIA [Concomitant]
     Dosage: UNK
     Route: 042
     Dates: start: 20050314, end: 20050314
  23. TRASYLOL [Suspect]
     Dosage: 200 ML CARDIOPULMONARY BYPASS PRIME
     Route: 050
     Dates: start: 20050505, end: 20050505
  24. ALBUMIN (HUMAN) [Concomitant]
     Dosage: 100 ML 25 % SOLUTION PRIME PUMP
     Route: 050
     Dates: start: 20050505, end: 20050505
  25. CEFUROXIME [Concomitant]
     Dosage: 1.5 GMS
     Route: 042
     Dates: start: 20050505, end: 20050505
  26. FENOLDOPAM [Concomitant]
     Dosage: 0.21 MCG
     Route: 042
     Dates: start: 20050505, end: 20050505

REACTIONS (11)
  - RENAL INJURY [None]
  - PAIN [None]
  - RENAL FAILURE [None]
  - RENAL IMPAIRMENT [None]
  - UNEVALUABLE EVENT [None]
  - FEAR [None]
  - DEATH [None]
  - MULTI-ORGAN FAILURE [None]
  - EMOTIONAL DISTRESS [None]
  - STRESS [None]
  - ANXIETY [None]
